FAERS Safety Report 4811808-2 (Version None)
Quarter: 2005Q4

REPORT INFORMATION
  Report Type: 
  Country: None (occurrence: None)
  Receive Date: 20051027
  Receipt Date: 20051027
  Transmission Date: 20060501
  Serious: Yes (Life-Threatening)
  Sender: FDA-Public Use
  Company Number: None

PATIENT
  Age: 75 Year
  Sex: Female
  Weight: 104.3273 kg

DRUGS (3)
  1. HURRICAINE SPRAY 20%  BEUTLICH [Suspect]
     Indication: ECHOCARDIOGRAM
     Dosage: 3-4 APPLICATIONS ONCE ENDOTRACHE
     Route: 007
     Dates: start: 20050901, end: 20050901
  2. DEMEROL [Concomitant]
  3. VERSED [Concomitant]

REACTIONS (5)
  - CYANOSIS [None]
  - LOSS OF CONSCIOUSNESS [None]
  - METHAEMOGLOBINAEMIA [None]
  - RESPIRATORY ARREST [None]
  - THERAPY NON-RESPONDER [None]
